FAERS Safety Report 23761795 (Version 1)
Quarter: 2024Q2

REPORT INFORMATION
  Report Type: Spontaneous
  Country: CN (occurrence: CN)
  Receive Date: 20240419
  Receipt Date: 20240419
  Transmission Date: 20240716
  Serious: Yes (Other)
  Sender: FDA-Public Use
  Company Number: CN-MEITHEAL-2024MPLIT00095

PATIENT
  Age: 73 Year
  Sex: Male

DRUGS (5)
  1. VORICONAZOLE [Suspect]
     Active Substance: VORICONAZOLE
     Indication: Candida infection
     Dosage: FOR 25DAYS
     Route: 048
  2. CEFMINOX SODIUM [Concomitant]
     Active Substance: CEFMINOX SODIUM
     Route: 065
  3. PIPERACILLIN SODIUM\TAZOBACTAM SODIUM [Concomitant]
     Active Substance: PIPERACILLIN SODIUM\TAZOBACTAM SODIUM
     Route: 065
  4. MEROPENEM [Concomitant]
     Active Substance: MEROPENEM
     Route: 065
  5. METHYLPREDNISOLONE [Concomitant]
     Active Substance: METHYLPREDNISOLONE
     Indication: Acute kidney injury
     Route: 042

REACTIONS (1)
  - Myelodysplastic syndrome [Recovered/Resolved]
